FAERS Safety Report 14366737 (Version 1)
Quarter: 2018Q1

REPORT INFORMATION
  Report Type: Spontaneous
  Country: LV (occurrence: LV)
  Receive Date: 20180109
  Receipt Date: 20180109
  Transmission Date: 20180509
  Serious: Yes (Hospitalization)
  Sender: FDA-Public Use
  Company Number: LV-ASTELLAS-2017US053642

PATIENT
  Age: 29 Year
  Sex: Female

DRUGS (3)
  1. CELLCEPT [Concomitant]
     Active Substance: MYCOPHENOLATE MOFETIL\MYCOPHENOLATE MOFETIL HYDROCHLORIDE
     Indication: RENAL TRANSPLANT
     Route: 065
     Dates: start: 2017
  2. MEDROL [Concomitant]
     Active Substance: METHYLPREDNISOLONE
     Indication: RENAL TRANSPLANT
     Route: 065
     Dates: start: 2017
  3. ADVAGRAF [Suspect]
     Active Substance: TACROLIMUS
     Indication: RENAL TRANSPLANT
     Route: 048
     Dates: start: 2017, end: 201707

REACTIONS (10)
  - Exercise tolerance decreased [Unknown]
  - Ventricular hypertrophy [Unknown]
  - Blood creatinine increased [Not Recovered/Not Resolved]
  - Angina pectoris [Unknown]
  - Brain natriuretic peptide increased [Recovering/Resolving]
  - Chest pain [Recovered/Resolved]
  - Cardiac failure [Unknown]
  - Dyspnoea [Recovering/Resolving]
  - Cardiotoxicity [Unknown]
  - Urinary tract infection [Unknown]

NARRATIVE: CASE EVENT DATE: 2017
